FAERS Safety Report 8335942-8 (Version None)
Quarter: 2012Q2

REPORT INFORMATION
  Report Type: 
  Country: None (occurrence: None)
  Receive Date: 20120501
  Receipt Date: 20120501
  Transmission Date: 20120825
  Serious: Yes (Hospitalization)
  Sender: FDA-Public Use
  Company Number: None

PATIENT
  Age: 60 Year
  Sex: Male
  Weight: 96.9 kg

DRUGS (1)
  1. VENLAFAXINE [Suspect]
     Indication: DEPRESSION
     Dosage: 37.5 MG BID PO
     Route: 048
     Dates: start: 20120406, end: 20120420

REACTIONS (5)
  - SPEECH DISORDER [None]
  - FALL [None]
  - PARKINSONISM [None]
  - BALANCE DISORDER [None]
  - SEROTONIN SYNDROME [None]
